FAERS Safety Report 25801170 (Version 2)
Quarter: 2025Q4

REPORT INFORMATION
  Report Type: Report from Study
  Country: US (occurrence: US)
  Receive Date: 20250915
  Receipt Date: 20251013
  Transmission Date: 20260117
  Serious: Yes (Other)
  Sender: ABBVIE
  Company Number: US-ABBVIE-6456649

PATIENT
  Age: 63 Year
  Sex: Female

DRUGS (1)
  1. RINVOQ [Suspect]
     Active Substance: UPADACITINIB
     Indication: Dermatitis atopic
     Route: 048
     Dates: start: 20220208

REACTIONS (3)
  - Squamous cell carcinoma [Recovered/Resolved]
  - Eczema [Recovering/Resolving]
  - Skin swelling [Recovered/Resolved]

NARRATIVE: CASE EVENT DATE: 20250101
